FAERS Safety Report 16983316 (Version 2)
Quarter: 2019Q4

REPORT INFORMATION
  Report Type: Spontaneous
  Country: RU (occurrence: CA)
  Receive Date: 20191101
  Receipt Date: 20191213
  Transmission Date: 20200122
  Serious: Yes (Other)
  Sender: FDA-Public Use
  Company Number: RU-SA-2019SA299229

PATIENT
  Age: 60 Year
  Sex: Male

DRUGS (14)
  1. GAZYVA [Concomitant]
     Active Substance: OBINUTUZUMAB
     Indication: CHEMOTHERAPY
     Dosage: UNK UNK, UNK
     Route: 065
  2. CYCLOPHOSPHAMIDE. [Concomitant]
     Active Substance: CYCLOPHOSPHAMIDE
     Indication: CHEMOTHERAPY
     Route: 065
  3. RECTODELT [Concomitant]
     Active Substance: PREDNISONE
     Indication: NEPHROPATHY
     Dosage: UNK UNK, UNK
     Route: 065
  4. MYCOPHENOLATE [Concomitant]
     Active Substance: MYCOPHENOLIC ACID
     Dosage: UNK UNK, UNK
     Route: 065
  5. CYCLOSPORIN [Concomitant]
     Active Substance: CYCLOSPORINE
     Indication: NEPHROPATHY
     Dosage: UNK UNK, UNK
     Route: 065
  6. GANCICLOVIR. [Concomitant]
     Active Substance: GANCICLOVIR
     Indication: CHEMOTHERAPY
     Dosage: UNK UNK, UNK
     Route: 065
  7. LEFLUNOMIDE. [Suspect]
     Active Substance: LEFLUNOMIDE
     Indication: NEPHROPATHY
     Dosage: 40 MG, UNK
     Route: 048
  8. MYLERAN [Suspect]
     Active Substance: BUSULFAN
     Indication: CHEMOTHERAPY
     Dosage: 3.2 MG/KG, UNK
     Route: 065
  9. VINCRISTINE SULFATE. [Concomitant]
     Active Substance: VINCRISTINE SULFATE
     Indication: CHEMOTHERAPY
     Dosage: UNK UNK, UNK
     Route: 065
  10. LEFLUNOMIDE. [Suspect]
     Active Substance: LEFLUNOMIDE
     Dosage: 100 MG UNK
     Route: 048
  11. DOXORUBICIN HYDROCHLORIDE. [Concomitant]
     Active Substance: DOXORUBICIN HYDROCHLORIDE
     Indication: CHEMOTHERAPY
     Dosage: UNK UNK, UNK
     Route: 065
  12. RITUXIMAB. [Concomitant]
     Active Substance: RITUXIMAB
     Indication: CHEMOTHERAPY
     Dosage: UNK UNK, UNK
     Route: 065
  13. ALEMTUZUMAB [Suspect]
     Active Substance: ALEMTUZUMAB
     Indication: CHEMOTHERAPY
     Dosage: 30 MG, UNK
     Route: 065
  14. BENDAMUSTINE [Concomitant]
     Active Substance: BENDAMUSTINE
     Indication: CHEMOTHERAPY
     Dosage: UNK UNK, UNK
     Route: 065

REACTIONS (2)
  - Drug ineffective [Unknown]
  - End stage renal disease [Unknown]
